FAERS Safety Report 21914471 (Version 1)
Quarter: 2023Q1

REPORT INFORMATION
  Report Type: Spontaneous
  Country: JP (occurrence: JP)
  Receive Date: 20230126
  Receipt Date: 20230126
  Transmission Date: 20230418
  Serious: Yes (Hospitalization, Other)
  Sender: FDA-Public Use
  Company Number: JP-MSD-M2022-25354

PATIENT
  Age: 69 Year
  Sex: Male

DRUGS (2)
  1. KEYTRUDA [Suspect]
     Active Substance: PEMBROLIZUMAB
     Indication: Prostate cancer
     Dosage: 200 MILLIGRAM, Q3W
     Route: 041
     Dates: start: 20220411, end: 20220613
  2. VEMLIDY [Suspect]
     Active Substance: TENOFOVIR ALAFENAMIDE FUMARATE
     Indication: Hepatitis
     Dosage: 25 MILLIGRAM, QD
     Route: 048
     Dates: start: 20220801, end: 20220920

REACTIONS (4)
  - Hepatitis B [Unknown]
  - Immune-mediated enterocolitis [Recovered/Resolved]
  - Agranulocytosis [Recovered/Resolved]
  - Hepatic function abnormal [Unknown]

NARRATIVE: CASE EVENT DATE: 20220606
